FAERS Safety Report 19640600 (Version 1)
Quarter: 2021Q3

REPORT INFORMATION
  Report Type: Spontaneous
  Country: US (occurrence: US)
  Receive Date: 20210730
  Receipt Date: 20210730
  Transmission Date: 20211014
  Serious: No
  Sender: FDA-Public Use
  Company Number: US-DENTSPLY PHARMACEUTICAL-2021SCDP000139

PATIENT
  Age: 63 Year
  Sex: Male

DRUGS (3)
  1. LIDOCAINE. [Suspect]
     Active Substance: LIDOCAINE
     Indication: ANALGESIC THERAPY
     Dosage: UNK 2% VISCOUS GEL
  2. DEXAMETHASONE. [Suspect]
     Active Substance: DEXAMETHASONE
     Indication: PRODUCT USED FOR UNKNOWN INDICATION
     Dosage: UNK
  3. MAGIC MOUTH WASH [Suspect]
     Active Substance: ALUMINUM HYDROXIDE\DIMETHICONE\DIPHENHYDRAMINE\LIDOCAINE\MAGNESIUM HYDROXIDE
     Indication: PRODUCT USED FOR UNKNOWN INDICATION
     Dosage: UNK MAGIC MOUTH WASH

REACTIONS (2)
  - Drug intolerance [Unknown]
  - Drug ineffective [Unknown]
